FAERS Safety Report 6070426-1 (Version None)
Quarter: 2009Q1

REPORT INFORMATION
  Report Type: 
  Country: None (occurrence: None)
  Receive Date: 20090209
  Receipt Date: 20090206
  Transmission Date: 20090719
  Serious: Yes (Death)
  Sender: FDA-Public Use
  Company Number: PHHY2008JP31580

PATIENT
  Sex: Male

DRUGS (4)
  1. DIOVAN [Suspect]
     Indication: HYPERTENSION
     Dosage: 40 MG
     Route: 048
     Dates: start: 20071128, end: 20080526
  2. CALBLOCK [Concomitant]
     Indication: HYPERTENSION
     Dosage: UNK
     Route: 048
     Dates: start: 20071211, end: 20080526
  3. ARICEPT [Concomitant]
     Dosage: 3 MG
     Route: 048
     Dates: start: 20080122, end: 20080526
  4. ARICEPT [Concomitant]
     Dosage: 5 MG
     Route: 048

REACTIONS (3)
  - DEATH [None]
  - GASTRIC CANCER [None]
  - HEPATIC NEOPLASM MALIGNANT [None]
